FAERS Safety Report 7343417-8 (Version None)
Quarter: 2011Q1

REPORT INFORMATION
  Report Type: 
  Country: None (occurrence: None)
  Receive Date: 20110310
  Receipt Date: 20100122
  Transmission Date: 20110831
  Serious: No
  Sender: FDA-Public Use
  Company Number: US-BAYER-201012201NA

PATIENT
  Sex: Female

DRUGS (2)
  1. XANAX [Concomitant]
     Indication: NERVOUSNESS
  2. MIRENA [Suspect]
     Indication: MENOMETRORRHAGIA
     Dosage: 20 ?G/D, CONT
     Route: 015
     Dates: end: 20100115

REACTIONS (3)
  - POST PROCEDURAL HAEMORRHAGE [None]
  - NERVOUSNESS [None]
  - AMENORRHOEA [None]
